FAERS Safety Report 5624716-4 (Version None)
Quarter: 2008Q1

REPORT INFORMATION
  Report Type: 
  Country: None (occurrence: None)
  Receive Date: 20080213
  Receipt Date: 20080204
  Transmission Date: 20080703
  Serious: Yes (Hospitalization)
  Sender: FDA-Public Use
  Company Number: B0507697A

PATIENT
  Age: 13 Year
  Sex: Male

DRUGS (2)
  1. AUGMENTIN '125' [Suspect]
     Indication: TONSILLITIS
     Dosage: 2G PER DAY
     Route: 048
     Dates: start: 20080117, end: 20080122
  2. OKI [Concomitant]
     Dosage: 160MG PER DAY
     Dates: start: 20080120, end: 20080122

REACTIONS (2)
  - RASH [None]
  - RASH MORBILLIFORM [None]
